FAERS Safety Report 19691030 (Version 1)
Quarter: 2021Q3

REPORT INFORMATION
  Report Type: Spontaneous
  Country: US (occurrence: US)
  Receive Date: 20210812
  Receipt Date: 20210812
  Transmission Date: 20211014
  Serious: Yes (Hospitalization)
  Sender: FDA-Public Use
  Company Number: None

PATIENT
  Sex: Female

DRUGS (12)
  1. CARISOPRODOL. [Concomitant]
     Active Substance: CARISOPRODOL
  2. DICYCLOMINE [Concomitant]
     Active Substance: DICYCLOMINE HYDROCHLORIDE
  3. ZOLPIDEM [Concomitant]
     Active Substance: ZOLPIDEM TARTRATE
  4. ALPRAZOLAM. [Concomitant]
     Active Substance: ALPRAZOLAM
  5. ATENOLOL. [Concomitant]
     Active Substance: ATENOLOL
  6. TOBRAMYCIN 300MG/5ML TOBI GEQ [Suspect]
     Active Substance: TOBRAMYCIN
     Indication: BRONCHIECTASIS
     Dosage: ?          OTHER DOSE:300 MG/5ML;OTHER FREQUENCY:NEB BID EV OTH MON;?
     Route: 055
     Dates: start: 20190110
  7. METHOTREXATE. [Concomitant]
     Active Substance: METHOTREXATE
  8. CITALOPRAM [Concomitant]
     Active Substance: CITALOPRAM HYDROBROMIDE
  9. FOLIC ACID. [Concomitant]
     Active Substance: FOLIC ACID
  10. LEVOTHYROXIN [Concomitant]
     Active Substance: LEVOTHYROXINE
  11. MELOXICAM. [Concomitant]
     Active Substance: MELOXICAM
  12. NYSATIN SUS [Concomitant]

REACTIONS (1)
  - Pneumothorax [None]
